FAERS Safety Report 10610244 (Version 1)
Quarter: 2014Q4

REPORT INFORMATION
  Report Type: Spontaneous
  Country: ES (occurrence: ES)
  Receive Date: 20141126
  Receipt Date: 20141126
  Transmission Date: 20150529
  Serious: Yes (Hospitalization)
  Sender: FDA-Public Use
  Company Number: ES-VERTEX PHARMACEUTICALS-2014-004668

PATIENT
  Age: 44 Year
  Sex: Male

DRUGS (1)
  1. INCIVO [Suspect]
     Active Substance: TELAPREVIR
     Indication: HEPATITIS C
     Dosage: 375 MG, BID
     Route: 048
     Dates: start: 20140426, end: 20140725

REACTIONS (1)
  - Pancreatitis acute [Recovered/Resolved]

NARRATIVE: CASE EVENT DATE: 20140722
